FAERS Safety Report 5423582-X (Version None)
Quarter: 2007Q3

REPORT INFORMATION
  Report Type: 
  Country: None (occurrence: None)
  Receive Date: 20070821
  Receipt Date: 20070821
  Transmission Date: 20080115
  Serious: Yes (Death, Hospitalization)
  Sender: FDA-Public Use
  Company Number: None

PATIENT
  Sex: Female

DRUGS (2)
  1. ORTHO EVRA [Suspect]
  2. EXCEDRIN [Concomitant]

REACTIONS (45)
  - ALANINE AMINOTRANSFERASE INCREASED [None]
  - ANAEMIA [None]
  - ANTIPHOSPHOLIPID SYNDROME [None]
  - ASPARTATE AMINOTRANSFERASE INCREASED [None]
  - ASTHENIA [None]
  - ATELECTASIS [None]
  - CARDIO-RESPIRATORY ARREST [None]
  - COUGH [None]
  - DIARRHOEA [None]
  - DIZZINESS [None]
  - DYSPEPSIA [None]
  - ECHOCARDIOGRAM ABNORMAL [None]
  - ELECTROMECHANICAL DISSOCIATION [None]
  - ESCHERICHIA URINARY TRACT INFECTION [None]
  - GASTRIC VARICES [None]
  - GASTROINTESTINAL HAEMORRHAGE [None]
  - HAEMATEMESIS [None]
  - HAEMATOMA [None]
  - HAEMATURIA [None]
  - HAEMORRHAGE [None]
  - HEADACHE [None]
  - HEPATIC HAEMATOMA [None]
  - HEPATIC STEATOSIS [None]
  - HYPERSPLENISM [None]
  - JAUNDICE [None]
  - LOSS OF CONSCIOUSNESS [None]
  - MESENTERIC VEIN THROMBOSIS [None]
  - NAUSEA [None]
  - NEPHROPATHY [None]
  - OESOPHAGEAL VARICES HAEMORRHAGE [None]
  - PLATELET COUNT DECREASED [None]
  - PLEURAL EFFUSION [None]
  - PORTAL HYPERTENSION [None]
  - PORTAL VEIN THROMBOSIS [None]
  - PULMONARY EMBOLISM [None]
  - PULMONARY HYPERTENSION [None]
  - PYREXIA [None]
  - RENAL FAILURE [None]
  - SPLENIC VEIN THROMBOSIS [None]
  - SPLENOMEGALY [None]
  - TACHYCARDIA [None]
  - THROMBOTIC THROMBOCYTOPENIC PURPURA [None]
  - TRICUSPID VALVE INCOMPETENCE [None]
  - URINARY TRACT INFECTION [None]
  - URINE COLOUR ABNORMAL [None]
